FAERS Safety Report 11506363 (Version 1)
Quarter: 2015Q3

REPORT INFORMATION
  Report Type: Spontaneous
  Country: US (occurrence: US)
  Receive Date: 20150915
  Receipt Date: 20150915
  Transmission Date: 20151125
  Serious: No
  Sender: FDA-Public Use
  Company Number: US-ROCHE-801459

PATIENT
  Sex: Female

DRUGS (3)
  1. PEGASYS [Suspect]
     Active Substance: PEGINTERFERON ALFA-2A
     Indication: CHRONIC HEPATITIS C
     Route: 058
     Dates: start: 20110720, end: 20110831
  2. RIBASPHERE [Suspect]
     Active Substance: RIBAVIRIN
     Indication: CHRONIC HEPATITIS C
     Dosage: FREQUENCY: DAILY IN DIVIDED DOSES
     Route: 048
     Dates: start: 20110720, end: 20110904
  3. TELAPREVIR [Suspect]
     Active Substance: TELAPREVIR
     Indication: CHRONIC HEPATITIS C
     Dosage: DRUG NAME:INCIVEK
     Route: 065
     Dates: start: 20110720, end: 20110810

REACTIONS (4)
  - Fatigue [Unknown]
  - Fluid intake reduced [Unknown]
  - Anaemia [Unknown]
  - Decreased appetite [Unknown]
